FAERS Safety Report 23513130 (Version 1)
Quarter: 2024Q1

REPORT INFORMATION
  Report Type: Spontaneous
  Country: US (occurrence: None)
  Receive Date: 20240210
  Receipt Date: 20240210
  Transmission Date: 20240410
  Serious: Yes (Other)
  Sender: FDA-Public Use
  Company Number: None

PATIENT
  Age: 57 Year
  Sex: Female
  Weight: 55.35 kg

DRUGS (6)
  1. AIMOVIG [Suspect]
     Active Substance: ERENUMAB-AOOE
     Indication: Migraine
     Dosage: OTHER QUANTITY : 1 INJECTION(S);?OTHER FREQUENCY : 1  MONTH;?OTHER ROUTE : INJECTION;?
     Route: 050
     Dates: start: 20240119
  2. TRAMADOL [Concomitant]
     Active Substance: TRAMADOL\TRAMADOL HYDROCHLORIDE
  3. B complex vitamin [Concomitant]
  4. MELATONIN [Concomitant]
     Active Substance: MELATONIN
  5. DIMETHYL SULFONE [Concomitant]
     Active Substance: DIMETHYL SULFONE
  6. CALCIUM [Concomitant]
     Active Substance: CALCIUM

REACTIONS (4)
  - Depression [None]
  - Fatigue [None]
  - Constipation [None]
  - Drug ineffective [None]

NARRATIVE: CASE EVENT DATE: 20240206
